FAERS Safety Report 24758870 (Version 1)
Quarter: 2024Q4

REPORT INFORMATION
  Report Type: Report from Study
  Country: US (occurrence: US)
  Receive Date: 20241220
  Receipt Date: 20241220
  Transmission Date: 20250115
  Serious: Yes (Hospitalization)
  Sender: ACCORD
  Company Number: US-Accord-460421

PATIENT
  Age: 65 Year
  Sex: Male

DRUGS (1)
  1. CLOZAPINE [Suspect]
     Active Substance: CLOZAPINE
     Indication: Product used for unknown indication
     Dosage: 50 MG - 3 TABLET BY MOUTH DAILY
     Route: 048

REACTIONS (3)
  - Hallucination, auditory [Unknown]
  - Failure to thrive [Unknown]
  - Self-injurious ideation [Unknown]
